FAERS Safety Report 25679257 (Version 1)
Quarter: 2025Q3

REPORT INFORMATION
  Report Type: Report from Study
  Country: IN (occurrence: IN)
  Receive Date: 20250814
  Receipt Date: 20250814
  Transmission Date: 20251020
  Serious: Yes (Other)
  Sender: ROCHE
  Company Number: IN-ROCHE-10000360818

PATIENT
  Age: 38 Year
  Sex: Female

DRUGS (5)
  1. PERJETA [Suspect]
     Active Substance: PERTUZUMAB
     Indication: HER2 positive breast cancer
     Route: 042
     Dates: start: 20250716
  2. CARBOPLATIN [Concomitant]
     Active Substance: CARBOPLATIN
  3. DOCETAXEL [Concomitant]
     Active Substance: DOCETAXEL
  4. HERCLONE [Concomitant]
  5. NYKRONE [Concomitant]

REACTIONS (1)
  - Breast mass [Unknown]
